FAERS Safety Report 14606872 (Version 2)
Quarter: 2018Q1

REPORT INFORMATION
  Report Type: Report from Study
  Country: IL (occurrence: IL)
  Receive Date: 20180307
  Receipt Date: 20180313
  Transmission Date: 20180509
  Serious: Yes (Hospitalization, Other)
  Sender: FDA-Public Use
  Company Number: IL-TAKEDA-2018TUS003331

PATIENT
  Sex: Female

DRUGS (1)
  1. VEDOLIZUMAB [Suspect]
     Active Substance: VEDOLIZUMAB
     Indication: COLITIS ULCERATIVE
     Dosage: 300 MG, UNK
     Route: 042
     Dates: start: 20171227

REACTIONS (4)
  - Incontinence [Unknown]
  - Influenza [Not Recovered/Not Resolved]
  - Pulmonary embolism [Recovering/Resolving]
  - Pneumonia [Not Recovered/Not Resolved]
